FAERS Safety Report 5270026-7 (Version None)
Quarter: 2007Q1

REPORT INFORMATION
  Report Type: 
  Country: None (occurrence: None)
  Receive Date: 20061213
  Receipt Date: 20030731
  Transmission Date: 20070707
  Serious: Yes (Other)
  Sender: FDA-Public Use
  Company Number: 2003UW09700

PATIENT
  Age: 80 Year
  Sex: Male
  Weight: 52.6173 kg

DRUGS (1)
  1. IRESSA [Suspect]
     Indication: NON-SMALL CELL LUNG CANCER
     Dosage: 25 MG DAILY PO
     Route: 048
     Dates: start: 20030728

REACTIONS (2)
  - DYSPNOEA [None]
  - WHEEZING [None]
